FAERS Safety Report 7642997-2 (Version None)
Quarter: 2011Q3

REPORT INFORMATION
  Report Type: 
  Country: None (occurrence: None)
  Receive Date: 20110728
  Receipt Date: 20110722
  Transmission Date: 20111222
  Serious: Yes (Other)
  Sender: FDA-Public Use
  Company Number: ES-B.I. PHARMACEUTICALS,INC./RIDGEFIELD-2011-ES-00167ES

PATIENT
  Sex: Female

DRUGS (5)
  1. PRADAXA [Suspect]
     Indication: ATRIAL FIBRILLATION
     Dosage: 220 MG
     Route: 048
     Dates: start: 20110620, end: 20110722
  2. FUROSEMIDA [Concomitant]
     Dosage: 1 TA/DAY
     Route: 048
  3. DILTIAZEM [Suspect]
     Dosage: 240 MG
     Route: 048
  4. LOVIBON [Concomitant]
     Dosage: 10 MG
     Route: 048
  5. ENALAPRIL MALEATE [Concomitant]
     Dosage: 10 MG
     Route: 048

REACTIONS (3)
  - ERYTHEMA [None]
  - OEDEMA PERIPHERAL [None]
  - PRURITUS [None]
